FAERS Safety Report 12466440 (Version 2)
Quarter: 2016Q4

REPORT INFORMATION
  Report Type: Report from Study
  Country: US (occurrence: US)
  Receive Date: 20160615
  Receipt Date: 20161030
  Transmission Date: 20170207
  Serious: Yes (Other)
  Sender: FDA-Public Use
  Company Number: US-AMGEN-USASL2016073851

PATIENT
  Age: 64 Year
  Sex: Female

DRUGS (4)
  1. CALCIUM W/VITAMIN D [Concomitant]
     Active Substance: CALCIUM\VITAMIN D
  2. PROLIA [Suspect]
     Active Substance: DENOSUMAB
     Indication: TRAUMATIC FRACTURE
  3. PROLIA [Suspect]
     Active Substance: DENOSUMAB
     Indication: OSTEOPOROSIS
     Dosage: 60 MG, Q6MO
     Route: 065
  4. PROLIA [Suspect]
     Active Substance: DENOSUMAB
     Indication: PATHOLOGICAL FRACTURE

REACTIONS (2)
  - Fracture [Unknown]
  - Off label use [Unknown]
